FAERS Safety Report 4383101-6 (Version None)
Quarter: 2004Q2

REPORT INFORMATION
  Report Type: 
  Country: None (occurrence: None)
  Receive Date: 20040622
  Receipt Date: 20040622
  Transmission Date: 20050107
  Serious: Yes (Death)
  Sender: FDA-Public Use
  Company Number: None

PATIENT
  Age: 45 Year
  Sex: Male
  Weight: 109.3169 kg

DRUGS (2)
  1. PROCARBAZINE [Suspect]
     Indication: BRAIN NEOPLASM
     Dosage: 2800 MG EVERY 5 D
     Dates: start: 20040315, end: 20040319
  2. THALIDOMIDE [Suspect]
     Indication: BRAIN NEOPLASM
     Dosage: SEE IMAGE
     Dates: start: 20040315, end: 20040407

REACTIONS (4)
  - AGITATION [None]
  - APHASIA [None]
  - CONVULSION [None]
  - DISEASE PROGRESSION [None]
